FAERS Safety Report 6525973-2 (Version None)
Quarter: 2010Q1

REPORT INFORMATION
  Report Type: 
  Country: None (occurrence: None)
  Receive Date: 20100104
  Receipt Date: 20091221
  Transmission Date: 20100710
  Serious: Yes (Death, Other)
  Sender: FDA-Public Use
  Company Number: PHHY2009JP58971

PATIENT
  Sex: Male
  Weight: 83 kg

DRUGS (9)
  1. ICL670A ICL+DISTAB [Suspect]
     Indication: IRON OVERLOAD
     Dosage: 500 MG DAILY
     Route: 048
     Dates: start: 20090306, end: 20090507
  2. ICL670A ICL+DISTAB [Suspect]
     Indication: MYELODYSPLASTIC SYNDROME
     Dosage: 1000 MG DAILY
     Route: 048
     Dates: start: 20090508, end: 20090918
  3. NEORAL [Suspect]
     Indication: MYELODYSPLASTIC SYNDROME
     Dosage: 75 MG DAILY
     Route: 048
     Dates: end: 20090611
  4. RED BLOOD CELLS, LEUCOCYTE DEPLETED [Concomitant]
     Indication: MYELODYSPLASTIC SYNDROME
     Dosage: 4 UNITS EVERY WEEK
     Dates: start: 20090323, end: 20090514
  5. RED BLOOD CELLS, LEUCOCYTE DEPLETED [Concomitant]
     Dosage: 2 UNITS EVERY WEEK
     Dates: start: 20090521, end: 20090919
  6. PRIMOBOLAN [Concomitant]
     Dosage: 20 MG, UNK
     Route: 048
     Dates: start: 20090306, end: 20090918
  7. DIGOXIN [Concomitant]
     Dosage: 0.125 MG, UNK
     Route: 048
     Dates: start: 20090315, end: 20090920
  8. ALDACTONE [Concomitant]
     Dosage: 25 MG, UNK
     Route: 048
     Dates: start: 20090306, end: 20090918
  9. LASIX [Concomitant]
     Dosage: 60 MG, UNK
     Route: 048
     Dates: start: 20090315, end: 20090918

REACTIONS (4)
  - BLOOD LACTATE DEHYDROGENASE INCREASED [None]
  - LEUKAEMIA [None]
  - MALIGNANT NEOPLASM PROGRESSION [None]
  - RENAL DISORDER [None]
